FAERS Safety Report 5355381-1 (Version None)
Quarter: 2007Q2

REPORT INFORMATION
  Report Type: 
  Country: None (occurrence: None)
  Receive Date: 20070530
  Receipt Date: 20070228
  Transmission Date: 20071010
  Serious: Yes (Other)
  Sender: FDA-Public Use
  Company Number: US200702005750

PATIENT
  Age: 29 Year
  Sex: Male

DRUGS (4)
  1. OLANZAPINE [Suspect]
     Indication: OBSESSIVE-COMPULSIVE DISORDER
     Dosage: SEE IMAGE
     Dates: start: 20000101, end: 20070226
  2. OLANZAPINE [Suspect]
     Indication: OBSESSIVE-COMPULSIVE DISORDER
     Dosage: SEE IMAGE
     Dates: start: 20000101, end: 20070226
  3. ZOLOFT [Concomitant]
  4. DEPAKOTE [Concomitant]

REACTIONS (1)
  - WEIGHT INCREASED [None]
